FAERS Safety Report 18535934 (Version 3)
Quarter: 2020Q4

REPORT INFORMATION
  Report Type: Report from Study
  Country: US (occurrence: US)
  Receive Date: 20201123
  Receipt Date: 20201209
  Transmission Date: 20210114
  Serious: No
  Sender: FDA-Public Use
  Company Number: NVSC2020US302147

PATIENT
  Sex: Male

DRUGS (1)
  1. OMNITROPE [Suspect]
     Active Substance: SOMATROPIN
     Indication: PITUITARY TUMOUR
     Dosage: 0.2 MG, QD
     Route: 058
     Dates: start: 20201021

REACTIONS (7)
  - Injection site extravasation [Unknown]
  - Muscle spasms [Unknown]
  - Arthralgia [Unknown]
  - Injection site pain [Unknown]
  - Device issue [Unknown]
  - Pain [Unknown]
  - Incorrect dose administered [Unknown]
